FAERS Safety Report 6278995-3 (Version None)
Quarter: 2009Q3

REPORT INFORMATION
  Report Type: 
  Country: None (occurrence: None)
  Receive Date: 20090723
  Receipt Date: 20090713
  Transmission Date: 20100115
  Serious: Yes (Hospitalization)
  Sender: FDA-Public Use
  Company Number: PHHO2009DE08840

PATIENT
  Sex: Male
  Weight: 77 kg

DRUGS (1)
  1. EXELON [Suspect]
     Indication: DEMENTIA
     Dosage: 9 MG, UNK
     Route: 048
     Dates: start: 20080418

REACTIONS (1)
  - BRONCHOPNEUMONIA [None]
